FAERS Safety Report 7536409-7 (Version None)
Quarter: 2011Q2

REPORT INFORMATION
  Report Type: 
  Country: None (occurrence: None)
  Receive Date: 20110609
  Receipt Date: 20110525
  Transmission Date: 20111010
  Serious: Yes (Other)
  Sender: FDA-Public Use
  Company Number: US-JNJFOC-20110512718

PATIENT
  Sex: Male
  Weight: 70.31 kg

DRUGS (10)
  1. REMICADE [Suspect]
     Route: 042
     Dates: start: 20101228
  2. ACETAMINOPHEN [Concomitant]
     Dates: start: 20090708, end: 20091202
  3. ANTIHISTAMINES [Concomitant]
     Indication: PREMEDICATION
     Dates: start: 20101228, end: 20101228
  4. ACETAMINOPHEN [Concomitant]
     Indication: PREMEDICATION
     Dates: start: 20101228, end: 20101228
  5. ACETAMINOPHEN [Concomitant]
     Dates: start: 20020712, end: 20061213
  6. REMICADE [Suspect]
     Dosage: 4 DOSES IN THE YEAR PRIOR TO ENROLLMENT IN TREAT REGISTRY
     Route: 042
  7. REMICADE [Suspect]
     Dosage: 22 DOSES
     Route: 042
     Dates: start: 20081118
  8. ANTIHISTAMINES [Concomitant]
     Dates: start: 20020712, end: 20061213
  9. STEROIDS NOS [Concomitant]
     Indication: PREMEDICATION
     Dates: start: 20101228, end: 20101228
  10. REMICADE [Suspect]
     Indication: CROHN'S DISEASE
     Dosage: TOTAL 48  DOSES
     Route: 042
     Dates: start: 20020712, end: 20080825

REACTIONS (1)
  - UVEITIS [None]
